FAERS Safety Report 8049990-9 (Version None)
Quarter: 2012Q1

REPORT INFORMATION
  Report Type: 
  Country: None (occurrence: None)
  Receive Date: 20120117
  Receipt Date: 20120114
  Transmission Date: 20120608
  Serious: Yes (Other)
  Sender: FDA-Public Use
  Company Number: US-PFIZER INC-2012011065

PATIENT
  Sex: Female
  Weight: 109.3 kg

DRUGS (3)
  1. NOVOLOG [Concomitant]
     Indication: DIABETES MELLITUS
     Dosage: UNK
  2. PAXIL [Concomitant]
     Dosage: UNK
  3. PREMPRO [Suspect]
     Indication: HOT FLUSH
     Dosage: 625/2.5 MG, 1X/DAY
     Route: 048
     Dates: start: 20111101

REACTIONS (2)
  - HAEMORRHAGE [None]
  - THROMBOSIS [None]
